FAERS Safety Report 12794966 (Version 1)
Quarter: 2016Q3

REPORT INFORMATION
  Report Type: Spontaneous
  Country: GB (occurrence: GB)
  Receive Date: 20160929
  Receipt Date: 20160929
  Transmission Date: 20161109
  Serious: Yes (Hospitalization, Other)
  Sender: FDA-Public Use
  Company Number: GB-SA-2016SA177547

PATIENT
  Age: 19 Month
  Sex: Male
  Weight: 13.75 kg

DRUGS (11)
  1. LEVETIRACETAM. [Concomitant]
     Active Substance: LEVETIRACETAM
  2. RIFAMPICIN [Concomitant]
     Active Substance: RIFAMPIN
  3. PHENYTOIN. [Suspect]
     Active Substance: PHENYTOIN
     Indication: SEIZURE
     Route: 042
     Dates: start: 20160507, end: 20160515
  4. AMOXICILLIN. [Concomitant]
     Active Substance: AMOXICILLIN
     Route: 048
  5. CHLORPHENAMINE [Concomitant]
     Active Substance: CHLORPHENIRAMINE MALEATE
  6. HEPARIN [Concomitant]
     Active Substance: HEPARIN SODIUM
  7. CHLORAL HYDRATE [Concomitant]
     Active Substance: CHLORAL HYDRATE
  8. SODIUM FEREDETATE [Concomitant]
     Active Substance: SODIUM FEREDETATE
  9. FENTANYL. [Concomitant]
     Active Substance: FENTANYL
  10. TEICOPLANIN [Concomitant]
     Active Substance: TEICOPLANIN
  11. CEFOTAXIME [Suspect]
     Active Substance: CEFOTAXIME SODIUM
     Indication: MENINGITIS STREPTOCOCCAL
     Route: 042
     Dates: start: 20160501, end: 20160515

REACTIONS (7)
  - Neutropenia [Recovered/Resolved]
  - Enterococcal infection [Unknown]
  - Pyrexia [Unknown]
  - Rash maculo-papular [Recovered/Resolved]
  - Inflammatory marker increased [Unknown]
  - Drug reaction with eosinophilia and systemic symptoms [Recovered/Resolved]
  - Eosinophilia [Unknown]

NARRATIVE: CASE EVENT DATE: 20160514
